FAERS Safety Report 10331830 (Version 2)
Quarter: 2014Q3

REPORT INFORMATION
  Report Type: Report from Study
  Country: US (occurrence: US)
  Receive Date: 20140722
  Receipt Date: 20140722
  Transmission Date: 20150326
  Serious: Yes (Death)
  Sender: FDA-Public Use
  Company Number: US-SA-2013SA095702

PATIENT
  Age: 54 Year
  Sex: Male

DRUGS (1)
  1. AUBAGIO [Suspect]
     Active Substance: TERIFLUNOMIDE
     Indication: MULTIPLE SCLEROSIS
     Dosage: TAKEN FROM- ABOUT 2 MONTHS AGO
     Route: 048
     Dates: start: 20130710

REACTIONS (2)
  - Cardiac death [Fatal]
  - Drug dose omission [Unknown]

NARRATIVE: CASE EVENT DATE: 20140610
